FAERS Safety Report 5307324-4 (Version None)
Quarter: 2007Q1

REPORT INFORMATION
  Report Type: 
  Country: None (occurrence: None)
  Receive Date: 20070201
  Receipt Date: 20061207
  Transmission Date: 20070707
  Serious: No
  Sender: FDA-Public Use
  Company Number: 2006PV026589

PATIENT
  Age: 56 Year
  Sex: Male

DRUGS (1)
  1. BYETTA [Suspect]
     Indication: DIABETES MELLITUS NON-INSULIN-DEPENDENT
     Dosage: 5 MCG BID SC
     Route: 058
     Dates: start: 20061101

REACTIONS (5)
  - DYSPEPSIA [None]
  - EARLY SATIETY [None]
  - HEADACHE [None]
  - NAUSEA [None]
  - VOMITING [None]
